FAERS Safety Report 16986413 (Version 4)
Quarter: 2019Q4

REPORT INFORMATION
  Report Type: Report from Study
  Country: AU (occurrence: AU)
  Receive Date: 20191101
  Receipt Date: 20191205
  Transmission Date: 20200122
  Serious: Yes (Other)
  Sender: FDA-Public Use
  Company Number: NVSC2019AU020298

PATIENT
  Sex: Female

DRUGS (2)
  1. GILENYA [Suspect]
     Active Substance: FINGOLIMOD HYDROCHLORIDE
     Indication: MULTIPLE SCLEROSIS
     Dosage: 0.5 MG, QD
     Route: 048
     Dates: start: 20190812
  2. GILENYA [Suspect]
     Active Substance: FINGOLIMOD HYDROCHLORIDE
     Dosage: 0.5 MG, EVERY SECOND DAY
     Route: 048

REACTIONS (14)
  - Sleep disorder [Unknown]
  - Abdominal pain upper [Unknown]
  - Neutropenia [Unknown]
  - Dyspepsia [Unknown]
  - Abdominal distension [Unknown]
  - Malabsorption [Unknown]
  - Decreased appetite [Unknown]
  - Lymphocyte count decreased [Unknown]
  - White blood cell count decreased [Unknown]
  - Eating disorder [Unknown]
  - Gastrointestinal sounds abnormal [Unknown]
  - Weight decreased [Unknown]
  - Eructation [Unknown]
  - Abdominal discomfort [Unknown]

NARRATIVE: CASE EVENT DATE: 2019
